FAERS Safety Report 6814340-X (Version None)
Quarter: 2010Q3

REPORT INFORMATION
  Report Type: 
  Country: None (occurrence: None)
  Receive Date: 20100702
  Receipt Date: 20100621
  Transmission Date: 20110219
  Serious: Yes (Other)
  Sender: FDA-Public Use
  Company Number: US-ELI_LILLY_AND_COMPANY-US201006006361

PATIENT
  Sex: Female

DRUGS (16)
  1. FORTEO [Suspect]
     Indication: OSTEOPOROSIS
     Dosage: 20 UG, DAILY (1/D)
     Dates: end: 20100618
  2. PRAVASTATIN [Concomitant]
  3. PREDNISONE [Concomitant]
  4. HYDROXYCHLOROQUINE SULFATE [Concomitant]
  5. NEXIUM [Concomitant]
  6. AMLODIPINE BESYLATE AND BENAZEPRIL HCL [Concomitant]
  7. METHOTREXATE [Concomitant]
  8. HYDROCHLOROTHIAZIDE [Concomitant]
  9. SUPER B COMPLEX [Concomitant]
  10. FOLIC ACID [Concomitant]
  11. TOPROL-XL [Concomitant]
  12. PLAVIX [Concomitant]
  13. SERTRALINE HCL [Concomitant]
  14. CALTRATE D                         /00944201/ [Concomitant]
  15. HYDROCODONE BITARTRATE [Concomitant]
  16. KLOR-CON [Concomitant]

REACTIONS (4)
  - ARTHRALGIA [None]
  - BEDRIDDEN [None]
  - INCOHERENT [None]
  - MYALGIA [None]
